FAERS Safety Report 5469272-9 (Version None)
Quarter: 2007Q3

REPORT INFORMATION
  Report Type: 
  Country: None (occurrence: None)
  Receive Date: 20070926
  Receipt Date: 20070926
  Transmission Date: 20080115
  Serious: Yes (Death)
  Sender: FDA-Public Use
  Company Number: None

PATIENT
  Age: 54 Year
  Sex: Male
  Weight: 112.9457 kg

DRUGS (1)
  1. BEVACIZUMAB [Suspect]
     Indication: MACULAR DEGENERATION
     Dosage: 1.25 MG ONCE
     Dates: start: 20070731, end: 20070731

REACTIONS (9)
  - APNOEA [None]
  - BRAIN STEM ISCHAEMIA [None]
  - CARDIO-RESPIRATORY ARREST [None]
  - CHEST DISCOMFORT [None]
  - CHEST PAIN [None]
  - HEMIPARESIS [None]
  - ISCHAEMIC STROKE [None]
  - LOSS OF CONSCIOUSNESS [None]
  - PULSE ABSENT [None]
